FAERS Safety Report 17504779 (Version 3)
Quarter: 2020Q1

REPORT INFORMATION
  Report Type: Spontaneous
  Country: SI (occurrence: DE)
  Receive Date: 20200305
  Receipt Date: 20200331
  Transmission Date: 20200409
  Serious: Yes (Other)
  Sender: FDA-Public Use
  Company Number: SI-BAYER-2020-038736

PATIENT
  Age: 15 Year
  Sex: Male

DRUGS (3)
  1. HELIXATE NEXGEN [Suspect]
     Active Substance: ANTIHEMOPHILIC FACTOR, HUMAN RECOMBINANT
     Indication: FACTOR VIII DEFICIENCY
     Dosage: 2000 IU, QD
     Dates: start: 20040501, end: 20040702
  2. HELIXATE NEXGEN [Suspect]
     Active Substance: ANTIHEMOPHILIC FACTOR, HUMAN RECOMBINANT
     Indication: FACTOR VIII DEFICIENCY
     Dosage: 1500 IU, QD
     Dates: start: 20131105, end: 20170515
  3. HELIXATE NEXGEN [Suspect]
     Active Substance: ANTIHEMOPHILIC FACTOR, HUMAN RECOMBINANT
     Indication: FACTOR VIII DEFICIENCY
     Dosage: 4000 UNK
     Dates: start: 20040501, end: 20040702

REACTIONS (3)
  - Seizure [None]
  - Anti factor VIII antibody positive [None]
  - Cerebral haemorrhage neonatal [None]

NARRATIVE: CASE EVENT DATE: 20040501
